FAERS Safety Report 18587651 (Version 1)
Quarter: 2020Q4

REPORT INFORMATION
  Report Type: Spontaneous
  Country: US (occurrence: US)
  Receive Date: 20201207
  Receipt Date: 20201207
  Transmission Date: 20210114
  Serious: Yes (Death)
  Sender: FDA-Public Use
  Company Number: NVSC2020US325437

PATIENT
  Age: 33 Year
  Sex: Female

DRUGS (1)
  1. PIQRAY [Suspect]
     Active Substance: ALPELISIB
     Indication: PRODUCT USED FOR UNKNOWN INDICATION
     Dosage: 300 MG/KG, PRN (CAPSULE, AS NEEDED)
     Route: 048
     Dates: start: 20191231

REACTIONS (1)
  - Death [Fatal]

NARRATIVE: CASE EVENT DATE: 20200818
